FAERS Safety Report 7229962-4 (Version None)
Quarter: 2011Q1

REPORT INFORMATION
  Report Type: 
  Country: None (occurrence: None)
  Receive Date: 20110117
  Receipt Date: 20110111
  Transmission Date: 20110831
  Serious: Yes (Hospitalization)
  Sender: FDA-Public Use
  Company Number: IT-ELI_LILLY_AND_COMPANY-IT201001001527

PATIENT
  Sex: Female

DRUGS (1)
  1. BYETTA [Suspect]
     Indication: TYPE 2 DIABETES MELLITUS
     Dosage: 10 UG/KG BODY WEIGHT/DAY
     Route: 058
     Dates: start: 20090427, end: 20090505

REACTIONS (4)
  - NAUSEA [None]
  - VOMITING [None]
  - DECREASED APPETITE [None]
  - OVERDOSE [None]
